FAERS Safety Report 6666084-5 (Version None)
Quarter: 2010Q2

REPORT INFORMATION
  Report Type: 
  Country: None (occurrence: None)
  Receive Date: 20100402
  Receipt Date: 20100325
  Transmission Date: 20101027
  Serious: Yes (Other)
  Sender: FDA-Public Use
  Company Number: GB-PFIZER INC-2010038416

PATIENT
  Age: 69 Year
  Sex: Male

DRUGS (7)
  1. ATORVASTATIN CALCIUM [Suspect]
     Dosage: 40 MG, 1X/DAY
  2. FUSIDIC ACID [Interacting]
     Dosage: 2.25 G, 1X/DAY
  3. RAMIPRIL [Concomitant]
     Dosage: 10 MG, 1X/DAY
  4. ATENOLOL [Concomitant]
     Dosage: 50 MG, 1X/DAY
  5. EZETIMIBE [Concomitant]
     Dosage: 10 MG, 1X/DAY
  6. ACETYLSALICYLIC ACID [Concomitant]
     Dosage: 75 MG, 1X/DAY
  7. DICLOFENAC [Concomitant]
     Dosage: 100 MG, 1X/DAY

REACTIONS (2)
  - DRUG INTERACTION [None]
  - RHABDOMYOLYSIS [None]
